FAERS Safety Report 25882028 (Version 1)
Quarter: 2025Q4

REPORT INFORMATION
  Report Type: Report from Study
  Country: US (occurrence: US)
  Receive Date: 20251006
  Receipt Date: 20251006
  Transmission Date: 20260117
  Serious: Yes (Hospitalization, Other)
  Sender: ABBVIE
  Company Number: US-ABBVIE-6483672

PATIENT
  Age: 84 Year
  Sex: Female

DRUGS (1)
  1. VYALEV [Suspect]
     Active Substance: FOSCARBIDOPA\FOSLEVODOPA
     Indication: Product used for unknown indication
     Route: 058
     Dates: start: 20250725

REACTIONS (4)
  - Catheter site swelling [Recovered/Resolved with Sequelae]
  - Catheter site abscess [Recovered/Resolved with Sequelae]
  - Gastric dilatation [Unknown]
  - Viral sepsis [Unknown]

NARRATIVE: CASE EVENT DATE: 20250101
